FAERS Safety Report 6085599-4 (Version None)
Quarter: 2009Q1

REPORT INFORMATION
  Report Type: 
  Country: None (occurrence: None)
  Receive Date: 20090217
  Receipt Date: 20080229
  Transmission Date: 20090719
  Serious: Yes (Death)
  Sender: FDA-Public Use
  Company Number: 550743

PATIENT
  Age: 50 Year
  Sex: Male

DRUGS (1)
  1. KETOROLAC (KETOROLAC) [Suspect]
     Indication: HEADACHE
     Dosage: INTRAMUSCULAR
     Route: 030

REACTIONS (2)
  - CELLULITIS [None]
  - NECROTISING FASCIITIS [None]
